FAERS Safety Report 6463338-2 (Version None)
Quarter: 2009Q4

REPORT INFORMATION
  Report Type: 
  Country: None (occurrence: None)
  Receive Date: 20091130
  Receipt Date: 20090810
  Transmission Date: 20100525
  Serious: Yes (Other)
  Sender: FDA-Public Use
  Company Number: US-AMGEN-QUU353939

PATIENT
  Sex: Female
  Weight: 67.2 kg

DRUGS (18)
  1. ENBREL [Suspect]
     Indication: RHEUMATOID ARTHRITIS
     Route: 058
     Dates: start: 20080909
  2. LEFLUNOMIDE [Concomitant]
     Route: 048
     Dates: start: 20081201
  3. OMEPRAZOLE [Concomitant]
  4. ARIMIDEX [Concomitant]
  5. ASTELIN [Concomitant]
  6. RHINOCORT [Concomitant]
  7. LISINOPRIL AND HYDROCHLOROTHIAZIDE [Concomitant]
  8. LEVOXYL [Concomitant]
  9. CYTOMEL [Concomitant]
  10. ROBAXIN [Concomitant]
  11. NABUMETONE [Concomitant]
  12. MULTI-VITAMINS [Concomitant]
  13. FISH OIL [Concomitant]
  14. ASPIRIN [Concomitant]
  15. CALCIUM WITH VITAMIN D [Concomitant]
  16. LYRICA [Concomitant]
  17. TYLENOL (CAPLET) [Concomitant]
  18. PREDNISONE [Concomitant]

REACTIONS (1)
  - BREAST CANCER STAGE II [None]
